FAERS Safety Report 22600450 (Version 1)
Quarter: 2023Q2

REPORT INFORMATION
  Report Type: Spontaneous
  Country: US (occurrence: US)
  Receive Date: 20230614
  Receipt Date: 20230614
  Transmission Date: 20230721
  Serious: No
  Sender: FDA-Public Use
  Company Number: US-PFIZER INC-PV202300088693

PATIENT
  Age: 47 Year
  Sex: Female
  Weight: 109.75 kg

DRUGS (3)
  1. NURTEC ODT [Suspect]
     Active Substance: RIMEGEPANT SULFATE
     Dosage: 1 TABLET ON THE TONGUE AND ALLOW TO DISSOLVE ORALLY DAILY 30 DAY(S)
     Route: 048
  2. DUPIXENT [Concomitant]
     Active Substance: DUPILUMAB
     Dosage: 1 DF (EVERY 2 WEEKS)
     Route: 058
     Dates: start: 20230301
  3. DUPIXENT [Concomitant]
     Active Substance: DUPILUMAB
     Dosage: 2 DF (EVERY 2WEEKS)

REACTIONS (2)
  - Bronchitis [Recovered/Resolved]
  - Off label use [Unknown]

NARRATIVE: CASE EVENT DATE: 20230301
